FAERS Safety Report 23629118 (Version 3)
Quarter: 2025Q4

REPORT INFORMATION
  Report Type: Spontaneous
  Country: JP (occurrence: JP)
  Receive Date: 20240313
  Receipt Date: 20251015
  Transmission Date: 20260118
  Serious: Yes (Other)
  Sender: EISAI
  Company Number: JP-Eisai Medical Research-EC-2023-141122

PATIENT
  Age: 67 Year
  Sex: Female

DRUGS (13)
  1. LENVATINIB [Suspect]
     Active Substance: LENVATINIB
     Indication: Endometrial cancer recurrent
     Dosage: DOSE AND FREQUENCY UNKNOWN
     Route: 048
     Dates: start: 202204
  2. LENVATINIB [Suspect]
     Active Substance: LENVATINIB
     Route: 048
  3. LENVATINIB [Suspect]
     Active Substance: LENVATINIB
     Route: 048
  4. LENVATINIB [Suspect]
     Active Substance: LENVATINIB
     Route: 048
  5. LENVATINIB [Suspect]
     Active Substance: LENVATINIB
     Route: 048
     Dates: start: 202211, end: 2023
  6. PEMBROLIZUMAB [Suspect]
     Active Substance: PEMBROLIZUMAB
     Indication: Endometrial cancer recurrent
     Route: 041
     Dates: start: 202204
  7. PEMBROLIZUMAB [Suspect]
     Active Substance: PEMBROLIZUMAB
     Dosage: DOSE AND FREQUENCY UNKNOWN
     Route: 041
     Dates: start: 202211, end: 2023
  8. HYDROCORTISONE [Concomitant]
     Active Substance: HYDROCORTISONE
     Indication: Adrenal insufficiency
  9. HYDROCORTISONE [Concomitant]
     Active Substance: HYDROCORTISONE
  10. HYDROCORTISONE [Concomitant]
     Active Substance: HYDROCORTISONE
  11. HYDROCORTISONE [Concomitant]
     Active Substance: HYDROCORTISONE
  12. HYDROCORTISONE [Concomitant]
     Active Substance: HYDROCORTISONE
     Dates: start: 202210
  13. CORTRIL [Concomitant]
     Active Substance: HYDROCORTISONE
     Indication: Adrenal insufficiency

REACTIONS (1)
  - Cardiac failure [Recovered/Resolved]
